FAERS Safety Report 4324718-4 (Version None)
Quarter: 2004Q1

REPORT INFORMATION
  Report Type: 
  Country: None (occurrence: None)
  Receive Date: 20040322
  Receipt Date: 20040305
  Transmission Date: 20041129
  Serious: Yes (Death)
  Sender: FDA-Public Use
  Company Number: 2004AP01232

PATIENT
  Age: 65 Year
  Sex: Female

DRUGS (7)
  1. IRESSA [Suspect]
     Indication: LUNG ADENOCARCINOMA
     Dosage: 1 DF DAILY PO
     Route: 048
     Dates: start: 20030811, end: 20030818
  2. IRESSA [Suspect]
     Indication: NON-SMALL CELL LUNG CANCER
     Dosage: 1 DF DAILY PO
     Route: 048
     Dates: start: 20030811, end: 20030818
  3. LOXONIN [Concomitant]
  4. SELBEX [Concomitant]
  5. RADIOTHERAPY [Concomitant]
  6. PARIET [Concomitant]
  7. TRYPTANOL [Concomitant]

REACTIONS (5)
  - DIABETES MELLITUS [None]
  - INTERSTITIAL LUNG DISEASE [None]
  - LUNG DISORDER [None]
  - LUNG INFILTRATION [None]
  - METASTASIS [None]
